FAERS Safety Report 8898482 (Version 1)
Quarter: 2012Q4

REPORT INFORMATION
  Report Type: 
  Country: US (occurrence: US)
  Receive Date: 20121109
  Receipt Date: 20121109
  Transmission Date: 20130627
  Serious: No
  Sender: FDA-Public Use
  Company Number: US-B.I. PHARMACEUTICALS,INC./RIDGEFIELD-2012-BP-27251BP

PATIENT
  Sex: Female
  Weight: 113 kg

DRUGS (7)
  1. SPIRIVA [Suspect]
     Indication: CHRONIC OBSTRUCTIVE PULMONARY DISEASE
     Dosage: 18 mcg
     Route: 055
     Dates: start: 201109
  2. COMBIVENT [Suspect]
     Indication: ASTHMA
     Dosage: 8 puf
     Route: 055
     Dates: start: 2002
  3. DILTIAZEM CD [Concomitant]
     Indication: HYPERTENSION
     Dosage: 240 mg
     Route: 048
     Dates: start: 2006
  4. XANAX [Concomitant]
     Indication: RELAXATION THERAPY
     Dosage: 3 mg
     Route: 048
     Dates: start: 2009
  5. XANAX [Concomitant]
     Dosage: 2 mg
     Route: 048
     Dates: start: 2009
  6. ZOLOFT [Concomitant]
     Indication: BIPOLAR DISORDER
     Dosage: 200 mg
     Route: 048
     Dates: start: 2009
  7. FLUTICASONE [Concomitant]
     Indication: SINUS DISORDER
     Route: 045
     Dates: start: 201201

REACTIONS (3)
  - Visual acuity reduced [Not Recovered/Not Resolved]
  - Product quality issue [Unknown]
  - Product quality issue [Unknown]
